FAERS Safety Report 11283209 (Version 1)
Quarter: 2015Q3

REPORT INFORMATION
  Report Type: Spontaneous
  Country: US (occurrence: None)
  Receive Date: 20150717
  Receipt Date: 20150717
  Transmission Date: 20151125
  Serious: No
  Sender: FDA-Public Use
  Company Number: None

PATIENT
  Age: 47 Year
  Sex: Female
  Weight: 104.33 kg

DRUGS (6)
  1. VITAMIN B12 [Concomitant]
     Active Substance: CYANOCOBALAMIN
  2. NORETHINDRONE NORETHINDRONE [Suspect]
     Active Substance: NORETHINDRONE
     Indication: MENOPAUSAL SYMPTOMS
     Dosage: 1/2 TAB TIB, TWICE DAILY, TAKEN BY MOUTH
     Route: 048
     Dates: start: 20150701, end: 20150706
  3. MAGNESIUM [Concomitant]
     Active Substance: MAGNESIUM
  4. KLONAPIN [Concomitant]
  5. CALCIUM [Concomitant]
     Active Substance: CALCIUM
  6. FERROUS GLUCONATE [Concomitant]
     Active Substance: FERROUS GLUCONATE

REACTIONS (4)
  - Haemorrhage [None]
  - Drug ineffective [None]
  - Thrombosis [None]
  - Muscle spasms [None]

NARRATIVE: CASE EVENT DATE: 20150701
